FAERS Safety Report 9321434 (Version 1)
Quarter: 2013Q2

REPORT INFORMATION
  Report Type: Spontaneous
  Country: GB (occurrence: None)
  Receive Date: 20130529
  Receipt Date: 20130529
  Transmission Date: 20140414
  Serious: Yes (Other)
  Sender: FDA-Public Use
  Company Number: AUR-APL-2013-04191

PATIENT
  Age: 33 Year
  Sex: Male
  Weight: 69 kg

DRUGS (3)
  1. RISPERIDONE [Suspect]
     Indication: PRODUCT USED FOR UNKNOWN INDICATION
  2. PAROXETINE(PAROXETINE) [Concomitant]
  3. PROPRANOLOL(PROPRANOLOL) [Concomitant]

REACTIONS (1)
  - Thrombocytopenia [None]
